FAERS Safety Report 8482122-1 (Version None)
Quarter: 2012Q3

REPORT INFORMATION
  Report Type: 
  Country: None (occurrence: None)
  Receive Date: 20120702
  Receipt Date: 20120622
  Transmission Date: 20120928
  Serious: Yes (Other)
  Sender: FDA-Public Use
  Company Number: US-ASTRAZENECA-2012SE42222

PATIENT
  Age: 20280 Day
  Sex: Female
  Weight: 98.4 kg

DRUGS (2)
  1. ARIMIDEX [Suspect]
     Indication: BREAST CANCER
     Route: 048
     Dates: start: 20120504, end: 20120525
  2. DILTIAZEM HYDROCHOLORIDE [Concomitant]
     Indication: HYPERTENSION
     Dates: start: 20090101

REACTIONS (2)
  - NIGHT SWEATS [None]
  - HOT FLUSH [None]
